FAERS Safety Report 4466310-7 (Version None)
Quarter: 2004Q4

REPORT INFORMATION
  Report Type: 
  Country: None (occurrence: None)
  Receive Date: 20041005
  Receipt Date: 20040708
  Transmission Date: 20050328
  Serious: Yes (Other)
  Sender: FDA-Public Use
  Company Number: US-GLAXOSMITHKLINE-A0517444A

PATIENT
  Age: 49 Year
  Sex: Male
  Weight: 81.8 kg

DRUGS (2)
  1. FLONASE [Suspect]
     Indication: RHINITIS ALLERGIC
     Dosage: 1SPR TWICE PER DAY
     Route: 045
     Dates: start: 20040101, end: 20040701
  2. ADVAIR DISKUS 100/50 [Suspect]
     Indication: ASTHMA
     Dosage: 1PUFF TWICE PER DAY
     Route: 055
     Dates: start: 20040101, end: 20040601

REACTIONS (9)
  - AGITATION [None]
  - ANXIETY [None]
  - DEPRESSION [None]
  - IRRITABILITY [None]
  - OTITIS MEDIA [None]
  - PARANOIA [None]
  - PHARYNGOLARYNGEAL PAIN [None]
  - SUICIDAL IDEATION [None]
  - VISUAL ACUITY REDUCED [None]
